FAERS Safety Report 5833741-X (Version None)
Quarter: 2008Q3

REPORT INFORMATION
  Report Type: 
  Country: None (occurrence: None)
  Receive Date: 20080805
  Receipt Date: 20080728
  Transmission Date: 20090109
  Serious: Yes (Death, Other)
  Sender: FDA-Public Use
  Company Number: US-ASTRAZENECA-2006UW21678

PATIENT
  Age: 508 Month
  Sex: Female
  Weight: 77.1 kg

DRUGS (3)
  1. SEROQUEL [Suspect]
     Indication: BIPOLAR DISORDER
     Dosage: 100 MG, 25 MG
     Route: 048
     Dates: start: 20000201, end: 20050101
  2. SEROQUEL [Suspect]
     Indication: DEPRESSION
     Dosage: 100 MG, 25 MG
     Route: 048
     Dates: start: 20000201, end: 20050101
  3. SEROQUEL [Suspect]
     Indication: ANXIETY
     Dosage: 100 MG, 25 MG
     Route: 048
     Dates: start: 20000201, end: 20050101

REACTIONS (2)
  - DEATH [None]
  - PANCREATITIS [None]
